FAERS Safety Report 12758293 (Version 1)
Quarter: 2016Q3

REPORT INFORMATION
  Report Type: Spontaneous
  Country: BR (occurrence: BR)
  Receive Date: 20160919
  Receipt Date: 20160919
  Transmission Date: 20161109
  Serious: Yes (Other)
  Sender: FDA-Public Use
  Company Number: BR-ELI_LILLY_AND_COMPANY-BR201609005540

PATIENT
  Sex: Male
  Weight: 74 kg

DRUGS (9)
  1. HUMALOG MIX50/50 [Suspect]
     Active Substance: INSULIN LISPRO
     Dosage: 42 IU, EACH EVENING
     Route: 058
     Dates: start: 20160907
  2. HUMALOG MIX50/50 [Suspect]
     Active Substance: INSULIN LISPRO
     Indication: TYPE 2 DIABETES MELLITUS
     Dosage: 40 IU, EACH MORNING
     Route: 058
     Dates: start: 2008
  3. HUMALOG MIX50/50 [Suspect]
     Active Substance: INSULIN LISPRO
     Dosage: 40 IU, EACH MORNING
     Route: 058
     Dates: start: 20160907
  4. HUMALOG MIX50/50 [Suspect]
     Active Substance: INSULIN LISPRO
     Dosage: 24 IU, QD, AT LUNCH
     Route: 058
     Dates: start: 2008
  5. TANSULOSINA [Concomitant]
     Dosage: UNK, UNKNOWN
     Route: 065
  6. HUMALOG MIX50/50 [Suspect]
     Active Substance: INSULIN LISPRO
     Dosage: 42 IU, EACH EVENING
     Route: 058
     Dates: start: 2008
  7. HUMALOG MIX50/50 [Suspect]
     Active Substance: INSULIN LISPRO
     Dosage: 24 IU, QD, AT LUNCH
     Route: 058
     Dates: start: 20160907
  8. ALLOPURINOL. [Concomitant]
     Active Substance: ALLOPURINOL
     Dosage: UNK, UNKNOWN
     Route: 065
  9. ATORVASTATINA [Concomitant]
     Active Substance: ATORVASTATIN
     Dosage: UNK, UNKNOWN
     Route: 065

REACTIONS (1)
  - Dementia [Not Recovered/Not Resolved]
